FAERS Safety Report 13295920 (Version 4)
Quarter: 2017Q3

REPORT INFORMATION
  Report Type: Spontaneous
  Country: KR (occurrence: KR)
  Receive Date: 20170303
  Receipt Date: 20170828
  Transmission Date: 20171127
  Serious: No
  Sender: FDA-Public Use
  Company Number: KR-009507513-1703KOR000929

PATIENT
  Age: 57 Year
  Sex: Female
  Weight: 71.8 kg

DRUGS (23)
  1. ENDOXAN [Concomitant]
     Active Substance: CYCLOPHOSPHAMIDE
     Indication: BREAST CANCER
     Dosage: 1080 MG, ONCE, CYCLE 1
     Route: 042
     Dates: start: 20161108, end: 20161108
  2. DEXAMETHASONE SODIUM PHOSPHATE. [Concomitant]
     Active Substance: DEXAMETHASONE SODIUM PHOSPHATE
     Dosage: 5 MG, ONCE; STRENGHT: 5MG/ML
     Route: 042
     Dates: start: 20161221, end: 20161221
  3. ALOXI [Concomitant]
     Active Substance: PALONOSETRON HYDROCHLORIDE
     Dosage: 0.25 MG, ONCE
     Route: 042
     Dates: start: 20161129, end: 20161129
  4. DEXAMETHASONE SODIUM PHOSPHATE. [Concomitant]
     Active Substance: DEXAMETHASONE SODIUM PHOSPHATE
     Dosage: 5 MG, ONCE; STRENGHT: 5MG/ML
     Route: 042
     Dates: start: 20170110, end: 20170110
  5. ERDOS [Concomitant]
     Indication: PROPHYLAXIS
     Dosage: 1 CAPSULE, TWO TIMES
     Route: 048
     Dates: start: 20161107, end: 20161107
  6. ERDOS [Concomitant]
     Dosage: 1 CAPSULE, TID
     Route: 048
     Dates: start: 20170103, end: 20170110
  7. EMEND (FOSAPREPITANT DIMEGLUMINE) [Suspect]
     Active Substance: FOSAPREPITANT DIMEGLUMINE
     Dosage: 150 MG, ONCE
     Route: 042
     Dates: start: 20161129, end: 20161129
  8. ALOXI [Concomitant]
     Active Substance: PALONOSETRON HYDROCHLORIDE
     Dosage: 0.25 MG, ONCE
     Route: 042
     Dates: start: 20161221, end: 20161221
  9. SYNTHROID [Concomitant]
     Active Substance: LEVOTHYROXINE SODIUM
     Indication: HYPOTHYROIDISM
     Dosage: 1 TABLET, QD
     Route: 048
     Dates: start: 201604
  10. ERDOS [Concomitant]
     Dosage: 1 CAPSULE, TID
     Route: 048
     Dates: start: 20061108, end: 20161115
  11. ADMYCIN [Concomitant]
     Indication: BREAST CANCER
     Dosage: 108 MG, ONCE, CYCLE 1
     Route: 042
     Dates: start: 20161108, end: 20161108
  12. DEXAMETHASONE SODIUM PHOSPHATE. [Concomitant]
     Active Substance: DEXAMETHASONE SODIUM PHOSPHATE
     Indication: PROPHYLAXIS OF NAUSEA AND VOMITING
     Dosage: 5 MG, ONCE; STRENGHT: 5MG/ML
     Route: 042
     Dates: start: 20161108, end: 20161108
  13. ALOXI [Concomitant]
     Active Substance: PALONOSETRON HYDROCHLORIDE
     Indication: PROPHYLAXIS OF NAUSEA AND VOMITING
     Dosage: 5 ML, ONCE
     Route: 042
     Dates: start: 20161108, end: 20161108
  14. CREVATIN [Concomitant]
     Indication: HYPERLIPIDAEMIA
     Dosage: 1 TABLET, QD
     Route: 048
     Dates: start: 2015
  15. SYNTHYROXINE [Concomitant]
     Active Substance: LEVOTHYROXINE SODIUM
     Indication: HYPOTHYROIDISM
     Dosage: 0.5 TABLET, QD
     Route: 048
     Dates: start: 201604
  16. EMEND (FOSAPREPITANT DIMEGLUMINE) [Suspect]
     Active Substance: FOSAPREPITANT DIMEGLUMINE
     Indication: PROPHYLAXIS OF NAUSEA AND VOMITING
     Dosage: 150 MG, ONCE
     Route: 042
     Dates: start: 20161108, end: 20161108
  17. ALOXI [Concomitant]
     Active Substance: PALONOSETRON HYDROCHLORIDE
     Dosage: 0.25 MG, ONCE
     Route: 042
     Dates: start: 20170110, end: 20170110
  18. GLIMARYL [Concomitant]
     Indication: DIABETES MELLITUS
     Dosage: 1 TABLET, BID
     Route: 048
     Dates: start: 2015
  19. DEXAMETHASONE SODIUM PHOSPHATE. [Concomitant]
     Active Substance: DEXAMETHASONE SODIUM PHOSPHATE
     Dosage: 5 MG, ONCE; STRENGHT: 5MG/ML
     Route: 042
     Dates: start: 20161129, end: 20161129
  20. EMEND (FOSAPREPITANT DIMEGLUMINE) [Suspect]
     Active Substance: FOSAPREPITANT DIMEGLUMINE
     Dosage: 150 MG, ONCE
     Route: 042
     Dates: start: 20161221, end: 20161221
  21. EMEND (FOSAPREPITANT DIMEGLUMINE) [Suspect]
     Active Substance: FOSAPREPITANT DIMEGLUMINE
     Dosage: 150 MG, ONCE
     Route: 042
     Dates: start: 20170110, end: 20170110
  22. TRAJENTA DUO [Concomitant]
     Active Substance: LINAGLIPTIN\METFORMIN HYDROCHLORIDE
     Indication: DIABETES MELLITUS
     Dosage: 1 TABLET, BID
     Route: 048
     Dates: start: 2015
  23. ERDOS [Concomitant]
     Dosage: 1 CAPSULE, TID
     Route: 048
     Dates: start: 20161213, end: 20161217

REACTIONS (1)
  - Nausea [Recovered/Resolved]

NARRATIVE: CASE EVENT DATE: 20161108
